FAERS Safety Report 16821604 (Version 4)
Quarter: 2019Q4

REPORT INFORMATION
  Report Type: Report from Study
  Country: US (occurrence: US)
  Receive Date: 20190918
  Receipt Date: 20191205
  Transmission Date: 20200122
  Serious: Yes (Death)
  Sender: FDA-Public Use
  Company Number: PHEH2019US037670

PATIENT
  Sex: Female

DRUGS (2)
  1. PIQRAY [Suspect]
     Active Substance: ALPELISIB
     Route: 048
  2. PIQRAY [Suspect]
     Active Substance: ALPELISIB
     Indication: PRODUCT USED FOR UNKNOWN INDICATION
     Route: 048

REACTIONS (9)
  - Nausea [Unknown]
  - Decreased appetite [Unknown]
  - Anaemia [Recovering/Resolving]
  - Eye infection [Unknown]
  - Fatigue [Unknown]
  - Vomiting [Unknown]
  - Death [Fatal]
  - Urinary tract infection [Unknown]
  - Stomatitis [Unknown]
